FAERS Safety Report 8467662 (Version 2)
Quarter: 2014Q1

REPORT INFORMATION
  Report Type: Spontaneous
  Country: US (occurrence: None)
  Receive Date: 20120228
  Receipt Date: 20140304
  Transmission Date: 20141002
  Serious: Yes (Death)
  Sender: FDA-Public Use
  Company Number: RB-32795-2011

PATIENT
  Sex: Male

DRUGS (1)
  1. SUBOXONE [Suspect]
     Indication: PRODUCT USED FOR UNKNOWN INDICATION
     Dosage: (SUBLINGUAL)
     Route: 060
     Dates: end: 2011

REACTIONS (3)
  - Overdose [None]
  - Drug diversion [None]
  - Drug abuse [None]
